FAERS Safety Report 7893983-9 (Version None)
Quarter: 2011Q4

REPORT INFORMATION
  Report Type: 
  Country: None (occurrence: None)
  Receive Date: 20111104
  Receipt Date: 20111031
  Transmission Date: 20120403
  Serious: Yes (Hospitalization)
  Sender: FDA-Public Use
  Company Number: US-SANOFI-AVENTIS-2011SA071746

PATIENT
  Sex: Male

DRUGS (3)
  1. SOLOSTAR [Suspect]
     Dates: start: 20050101
  2. LANTUS [Suspect]
     Dosage: DOSE:50 UNIT(S)
     Route: 058
     Dates: start: 20050101
  3. INSULIN DETEMIR [Suspect]
     Dosage: DOSE:50 UNIT(S)
     Route: 065

REACTIONS (6)
  - BLOOD GLUCOSE INCREASED [None]
  - PRODUCT QUALITY ISSUE [None]
  - HYPOGLYCAEMIA [None]
  - PERIPHERAL ARTERIAL OCCLUSIVE DISEASE [None]
  - WRONG DRUG ADMINISTERED [None]
  - BLOOD GLUCOSE DECREASED [None]
